FAERS Safety Report 7907439-8 (Version None)
Quarter: 2011Q4

REPORT INFORMATION
  Report Type: 
  Country: None (occurrence: None)
  Receive Date: 20111110
  Receipt Date: 20111028
  Transmission Date: 20120403
  Serious: Yes (Death)
  Sender: FDA-Public Use
  Company Number: IL-MYLANLABS-2011S1022786

PATIENT
  Age: 51 Year
  Sex: Female

DRUGS (13)
  1. MITOXANTRONE [Suspect]
     Indication: BREAST CANCER METASTATIC
     Route: 065
  2. CAPECITABINE [Suspect]
     Indication: BREAST CANCER METASTATIC
     Route: 065
  3. VINORELBINE [Suspect]
     Indication: BREAST CANCER METASTATIC
     Route: 065
  4. MITOMYCIN [Suspect]
     Indication: BREAST CANCER METASTATIC
     Route: 065
  5. LETROZOLE [Suspect]
     Indication: BREAST CANCER METASTATIC
     Route: 065
  6. FUROSEMIDE [Concomitant]
     Route: 065
  7. GEMCITABINE [Suspect]
     Indication: BREAST CANCER METASTATIC
     Route: 065
  8. OMEPRAZOLE [Concomitant]
     Route: 065
  9. EXEMESTANE [Suspect]
     Indication: BREAST CANCER METASTATIC
     Route: 065
  10. FENTANYL [Concomitant]
     Route: 061
  11. FULVESTRANT [Suspect]
     Indication: BREAST CANCER METASTATIC
     Route: 065
  12. MEGESTROL ACETATE [Suspect]
     Indication: BREAST CANCER METASTATIC
     Route: 065
  13. PACLITAXEL [Suspect]
     Indication: BREAST CANCER METASTATIC
     Route: 065

REACTIONS (2)
  - HEPATIC FAILURE [None]
  - HEPATIC CIRRHOSIS [None]
